FAERS Safety Report 22015438 (Version 3)
Quarter: 2023Q1

REPORT INFORMATION
  Report Type: Spontaneous
  Country: US (occurrence: None)
  Receive Date: 20230221
  Receipt Date: 20230323
  Transmission Date: 20230417
  Serious: No
  Sender: FDA-Public Use
  Company Number: 2023A020955

PATIENT
  Sex: Male

DRUGS (1)
  1. BYDUREON BCISE [Suspect]
     Active Substance: EXENATIDE
     Indication: Diabetes mellitus
     Dosage: 2.0MG UNKNOWN
     Route: 058

REACTIONS (3)
  - Glycosylated haemoglobin abnormal [Unknown]
  - Drug dose omission by device [Unknown]
  - Device leakage [Unknown]
